FAERS Safety Report 4896928-9 (Version None)
Quarter: 2006Q1

REPORT INFORMATION
  Report Type: 
  Country: None (occurrence: None)
  Receive Date: 20060131
  Receipt Date: 20060116
  Transmission Date: 20060701
  Serious: Yes (Hospitalization)
  Sender: FDA-Public Use
  Company Number: FRWYE302316JAN06

PATIENT
  Age: 77 Year
  Sex: Female
  Weight: 70 kg

DRUGS (2)
  1. ENBREL [Suspect]
     Indication: PUSTULAR PSORIASIS
     Route: 058
     Dates: start: 20051230, end: 20060112
  2. CLOBETASOL PROPIONATE [Concomitant]
     Indication: PUSTULAR PSORIASIS
     Dosage: UNKNOWN
     Dates: start: 20041020

REACTIONS (2)
  - CONDITION AGGRAVATED [None]
  - PUSTULAR PSORIASIS [None]
